FAERS Safety Report 19680758 (Version 1)
Quarter: 2021Q3

REPORT INFORMATION
  Report Type: Spontaneous
  Country: US (occurrence: US)
  Receive Date: 20210810
  Receipt Date: 20210810
  Transmission Date: 20211014
  Serious: No
  Sender: FDA-Public Use
  Company Number: None

PATIENT
  Age: 41 Year

DRUGS (4)
  1. OMEPRAZOLE DR 20 MG [Suspect]
     Active Substance: OMEPRAZOLE
     Indication: GASTROOESOPHAGEAL REFLUX DISEASE
     Dosage: ?          QUANTITY:1 CAPSULE(S);?
     Route: 048
     Dates: start: 20210807, end: 20210810
  2. ATORVASTATIN [Concomitant]
     Active Substance: ATORVASTATIN
  3. LABETALOL [Concomitant]
     Active Substance: LABETALOL\LABETALOL HYDROCHLORIDE
  4. HYDROCHLOROTHIAZIDE. [Concomitant]
     Active Substance: HYDROCHLOROTHIAZIDE

REACTIONS (4)
  - Therapy change [None]
  - Gastrooesophageal reflux disease [None]
  - Insurance issue [None]
  - Drug ineffective [None]

NARRATIVE: CASE EVENT DATE: 20210810
